FAERS Safety Report 10707608 (Version 2)
Quarter: 2015Q1

REPORT INFORMATION
  Report Type: Report from Study
  Country: KR (occurrence: KR)
  Receive Date: 20150113
  Receipt Date: 20150113
  Transmission Date: 20150721
  Serious: Yes (Hospitalization)
  Sender: FDA-Public Use
  Company Number: KR-OTSUKA-US-2014-14140

PATIENT

DRUGS (5)
  1. BLINDED OPC-14597 [Suspect]
     Active Substance: CILOSTAZOL
     Indication: BIPOLAR I DISORDER
     Dosage: UNK
     Route: 030
     Dates: start: 20140814, end: 20141008
  2. ZOLPIDEM [Concomitant]
     Active Substance: ZOLPIDEM\ZOLPIDEM TARTRATE
     Indication: INSOMNIA
     Dosage: 10 MG MILLIGRAM(S), SINGLE
     Route: 048
     Dates: start: 20141120, end: 20141120
  3. LORAZEPAM. [Concomitant]
     Active Substance: LORAZEPAM
     Indication: INSOMNIA
     Dosage: 1 MG MILLIGRAM(S), SINGLE
     Route: 048
     Dates: start: 20141116, end: 20141116
  4. LEVOTHYROXINE SODIUM. [Concomitant]
     Active Substance: LEVOTHYROXINE SODIUM
     Indication: HYPOTHYROIDISM
     Dosage: 75 ?G MICROGRAM(S), UNK
     Route: 048
     Dates: start: 20120403, end: 20141121
  5. BLINDED OPC-14597 [Suspect]
     Active Substance: CILOSTAZOL
     Dosage: 400 MG MILLIGRAM(S), UNK
     Route: 030
     Dates: start: 20141106, end: 20141106

REACTIONS (5)
  - Insomnia [Recovered/Resolved]
  - Irritability [Recovered/Resolved]
  - Headache [None]
  - Chills [None]
  - Drug ineffective [None]

NARRATIVE: CASE EVENT DATE: 20141121
